FAERS Safety Report 6187072-1 (Version None)
Quarter: 2009Q2

REPORT INFORMATION
  Report Type: 
  Country: None (occurrence: None)
  Receive Date: 20090512
  Receipt Date: 20090430
  Transmission Date: 20091009
  Serious: Yes (Hospitalization, Other)
  Sender: FDA-Public Use
  Company Number: IR-PFIZER INC-2009206685

PATIENT
  Age: 30 Year

DRUGS (1)
  1. PREDNISOLONE AND PREDNISOLONE STEAGLATE [Suspect]
     Indication: OFF LABEL USE
     Dosage: 200 MG, 1X/DAY

REACTIONS (2)
  - OFF LABEL USE [None]
  - PNEUMOCYSTIS JIROVECI PNEUMONIA [None]
